FAERS Safety Report 8134244-2 (Version None)
Quarter: 2012Q1

REPORT INFORMATION
  Report Type: 
  Country: None (occurrence: None)
  Receive Date: 20120209
  Receipt Date: 20120126
  Transmission Date: 20120608
  Serious: Yes (Other)
  Sender: FDA-Public Use
  Company Number: US-2012-10079

PATIENT
  Age: 12 Year
  Sex: Male

DRUGS (2)
  1. BUSULFAN [Suspect]
     Dosage: 12.8 MG/KG, DAILY, 16.0 MG/KG, DAILY DOSE, INTRAVENOUS
     Route: 042
  2. CYCLOPHOSPHAMIDE [Concomitant]

REACTIONS (3)
  - FUNGAL SEPSIS [None]
  - CHRONIC GRAFT VERSUS HOST DISEASE [None]
  - ACUTE GRAFT VERSUS HOST DISEASE [None]
